FAERS Safety Report 17205930 (Version 2)
Quarter: 2020Q2

REPORT INFORMATION
  Report Type: Spontaneous
  Country: DK (occurrence: DK)
  Receive Date: 20191227
  Receipt Date: 20200622
  Transmission Date: 20200713
  Serious: Yes (Death, Hospitalization)
  Sender: FDA-Public Use
  Company Number: DK-ALVOGEN-2019-ALVOGEN-102232

PATIENT
  Age: 26 Year
  Sex: Female

DRUGS (11)
  1. RIVOTRIL [Suspect]
     Active Substance: CLONAZEPAM
     Indication: PRODUCT USED FOR UNKNOWN INDICATION
     Route: 065
     Dates: start: 20180318
  2. FLUOXETINE [Suspect]
     Active Substance: FLUOXETINE HYDROCHLORIDE
     Indication: OBSESSIVE-COMPULSIVE DISORDER
     Dosage: 10 MG DAILY
     Route: 048
     Dates: start: 2005
  3. OLANZAPINE. [Concomitant]
     Active Substance: OLANZAPINE
     Indication: PRODUCT USED FOR UNKNOWN INDICATION
     Route: 048
     Dates: start: 20180521, end: 20180521
  4. NITOMAN [Concomitant]
     Active Substance: TETRABENAZINE
     Indication: TOURETTE^S DISORDER
     Dosage: STRENGTH: 25 MG ?(37.5 MG,1 D)
     Route: 048
     Dates: start: 20180325
  5. VITAMIN D [Concomitant]
     Active Substance: VITAMIN D NOS
     Indication: CALCIUM DEFICIENCY
     Dosage: STRENGTH: 400 MG CALCIUM + 19 MICROG VITAMIN D3 (2 DOSAGE FORM,1 D)
     Route: 048
     Dates: start: 20120723, end: 2012
  6. NITOMAN [Concomitant]
     Active Substance: TETRABENAZINE
     Indication: TOURETTE^S DISORDER
     Dosage: STRENGTH: 25 MG ?(12.5 MG/1 D)
     Route: 048
     Dates: start: 20180325
  7. FLUOXETINE [Suspect]
     Active Substance: FLUOXETINE HYDROCHLORIDE
     Indication: OBSESSIVE-COMPULSIVE DISORDER
     Dosage: 60 MG DAILY
     Route: 048
     Dates: start: 2008
  8. OXAPAX [Concomitant]
     Active Substance: OXAZEPAM
     Indication: PRODUCT USED FOR UNKNOWN INDICATION
     Dosage: THE PATIENT RECEIVED 15 MG OF OXAPAX ON 21.05.2018 AS OPPOSED TO ?NORMALLY 7.5 MG DAILY (15 MG)
     Route: 048
     Dates: start: 20180521
  9. FRISIUM [Concomitant]
     Active Substance: CLOBAZAM
     Indication: TOURETTE^S DISORDER
     Dosage: DOSAGE: 5 MG MORNING + 10 MG EVENING STRENGTH: 10 MG
     Route: 048
     Dates: start: 20180326
  10. IMOCLONE [Concomitant]
     Active Substance: ZOPICLONE
     Indication: INSOMNIA
     Dosage: DOSAGE: 0.5 TABLET IF NEEDED. STRENGTH: 7.5MG (3.75 MG)
     Route: 048
     Dates: start: 20180319
  11. FLUOXETINE [Suspect]
     Active Substance: FLUOXETINE HYDROCHLORIDE
     Indication: OBSESSIVE-COMPULSIVE DISORDER
     Dosage: 20 MG DAILY
     Route: 048

REACTIONS (39)
  - Contusion [Unknown]
  - Sluggishness [Unknown]
  - Staring [Unknown]
  - Stomatitis [Unknown]
  - Tourette^s disorder [Unknown]
  - Vomiting [Unknown]
  - Seizure [Unknown]
  - Speech disorder [Unknown]
  - Dysstasia [Unknown]
  - Intentional self-injury [Unknown]
  - Disorientation [Unknown]
  - Overdose [Fatal]
  - Diarrhoea [Unknown]
  - Fall [Unknown]
  - Excessive eye blinking [Unknown]
  - Hyperhidrosis [Unknown]
  - Toxicity to various agents [Fatal]
  - Screaming [Unknown]
  - Cachexia [Unknown]
  - Personality change [Unknown]
  - Sedation [Unknown]
  - Mental disorder [Unknown]
  - Dyspnoea [Unknown]
  - Depressed mood [Unknown]
  - Insomnia [Unknown]
  - Cardiac arrest [Unknown]
  - High-pitched crying [Unknown]
  - Wound haemorrhage [Unknown]
  - Scratch [Unknown]
  - General physical health deterioration [Unknown]
  - Fatigue [Unknown]
  - Tremor [Unknown]
  - Balance disorder [Unknown]
  - Feeling abnormal [Unknown]
  - Somnolence [Unknown]
  - Drug intolerance [Unknown]
  - Restlessness [Unknown]
  - Throat clearing [Unknown]
  - Obsessive-compulsive symptom [Unknown]

NARRATIVE: CASE EVENT DATE: 20180316
